FAERS Safety Report 8848901 (Version 1)
Quarter: 2012Q4

REPORT INFORMATION
  Report Type: Spontaneous
  Country: AU (occurrence: None)
  Receive Date: 20121016
  Receipt Date: 20121016
  Transmission Date: 20130627
  Serious: Yes (Other)
  Sender: FDA-Public Use
  Company Number: FK201202999

PATIENT
  Age: 69 Year
  Sex: Female

DRUGS (1)
  1. LEVETIRACETAM [Suspect]
     Indication: TEMPORAL LOBE EPILEPSY
     Dosage: 500 mg, 1 in 12 h,  Unknown

REACTIONS (14)
  - Tubulointerstitial nephritis [None]
  - Stomatitis [None]
  - Malaise [None]
  - Mucosal ulceration [None]
  - Rash [None]
  - Skin exfoliation [None]
  - Urinary tract infection [None]
  - Fluid overload [None]
  - Azotaemia [None]
  - Condition aggravated [None]
  - Metabolic acidosis [None]
  - Simplex virus test positive [None]
  - Delirium [None]
  - Haemodialysis [None]
